FAERS Safety Report 25631090 (Version 4)
Quarter: 2025Q4

REPORT INFORMATION
  Report Type: Report from Study
  Country: US (occurrence: US)
  Receive Date: 20250801
  Receipt Date: 20251002
  Transmission Date: 20260117
  Serious: No
  Sender: ABBVIE
  Company Number: US-ABBVIE-6392033

PATIENT
  Sex: Female
  Weight: 54.431 kg

DRUGS (2)
  1. CREON [Suspect]
     Active Substance: PANCRELIPASE AMYLASE\PANCRELIPASE LIPASE\PANCRELIPASE PROTEASE
     Indication: Pancreaticoduodenectomy
     Dosage: FORM STRENGTH: 36000 UNIT?2 CAPSULE EACH MEAL 1 CAPSULE EACH SNACK
     Route: 048
     Dates: start: 202404
  2. CREON [Suspect]
     Active Substance: PANCRELIPASE AMYLASE\PANCRELIPASE LIPASE\PANCRELIPASE PROTEASE
     Indication: Pancreaticoduodenectomy
     Dosage: FORM STRENGTH: 36000 UNIT?3 CAPSULE EACH MEAL 2 CAPSULE EACH SNACK
     Route: 048

REACTIONS (3)
  - Panic reaction [Unknown]
  - Dyspepsia [Not Recovered/Not Resolved]
  - Constipation [Unknown]
